FAERS Safety Report 5058336-X (Version None)
Quarter: 2006Q2

REPORT INFORMATION
  Report Type: 
  Country: None (occurrence: None)
  Receive Date: 20060628
  Receipt Date: 20060324
  Transmission Date: 20061013
  Serious: Yes (Hospitalization)
  Sender: FDA-Public Use
  Company Number: PHEH2006US04033

PATIENT
  Age: 68 Year
  Sex: Female

DRUGS (5)
  1. SIMULECT [Suspect]
     Indication: RENAL TRANSPLANT
     Dosage: 20 MG, ONCE/SINGLE, INTRAVENOUS; SEE IMAGE
     Route: 042
     Dates: start: 20050914, end: 20050914
  2. SIMULECT [Suspect]
     Indication: RENAL TRANSPLANT
     Dosage: 20 MG, ONCE/SINGLE, INTRAVENOUS; SEE IMAGE
     Route: 042
     Dates: start: 20050920, end: 20050920
  3. PROGRAF [Concomitant]
  4. CELLCEPT [Concomitant]
  5. PREDNISONE TAB [Concomitant]

REACTIONS (6)
  - BLOOD CREATININE INCREASED [None]
  - HAEMODIALYSIS [None]
  - KIDNEY TRANSPLANT REJECTION [None]
  - NEPHRECTOMY [None]
  - RENAL NECROSIS [None]
  - RENAL VEIN THROMBOSIS [None]
